FAERS Safety Report 5064360-3 (Version None)
Quarter: 2006Q3

REPORT INFORMATION
  Report Type: 
  Country: None (occurrence: None)
  Receive Date: 20060725
  Receipt Date: 20060721
  Transmission Date: 20061208
  Serious: Yes (Life-Threatening)
  Sender: FDA-Public Use
  Company Number: 2847

PATIENT
  Sex: Female
  Weight: 44.9061 kg

DRUGS (1)
  1. AMNESTEEM [Suspect]
     Dosage: 40 MG, QD, PO
     Route: 048
     Dates: start: 20051101, end: 20060301

REACTIONS (12)
  - ABDOMINAL PAIN UPPER [None]
  - ANXIETY [None]
  - DEPRESSION [None]
  - DRUG INTOLERANCE [None]
  - FEAR [None]
  - INSOMNIA [None]
  - IRRITABILITY [None]
  - LETHARGY [None]
  - MOVEMENT DISORDER [None]
  - PANIC ATTACK [None]
  - SUICIDE ATTEMPT [None]
  - WEIGHT DECREASED [None]
